FAERS Safety Report 20441653 (Version 2)
Quarter: 2022Q1

REPORT INFORMATION
  Report Type: Spontaneous
  Country: US (occurrence: US)
  Receive Date: 20220208
  Receipt Date: 20220216
  Transmission Date: 20220423
  Serious: Yes (Hospitalization, Other)
  Sender: FDA-Public Use
  Company Number: US-MLMSERVICE-20220120-3325882-1

PATIENT
  Age: 43 Year
  Sex: Female

DRUGS (2)
  1. METHYLPREDNISOLONE [Suspect]
     Active Substance: METHYLPREDNISOLONE
     Indication: Sarcoidosis
     Dosage: UNK
     Route: 042
  2. METHOTREXATE [Suspect]
     Active Substance: METHOTREXATE
     Indication: Sarcoidosis
     Dosage: UNK
     Route: 065

REACTIONS (7)
  - Hilar lymphadenopathy [Recovering/Resolving]
  - Granuloma [Recovering/Resolving]
  - Pancytopenia [Recovering/Resolving]
  - Pneumonia [Recovering/Resolving]
  - Hepatosplenomegaly [Recovering/Resolving]
  - Condition aggravated [Recovering/Resolving]
  - Histoplasmosis disseminated [Recovering/Resolving]
